FAERS Safety Report 18398765 (Version 1)
Quarter: 2020Q4

REPORT INFORMATION
  Report Type: Spontaneous
  Country: US (occurrence: US)
  Receive Date: 20201019
  Receipt Date: 20201019
  Transmission Date: 20210114
  Serious: Yes (Other)
  Sender: FDA-Public Use
  Company Number: US-GLAXOSMITHKLINE-US2020AMR206667

PATIENT
  Sex: Female

DRUGS (1)
  1. ZEJULA [Suspect]
     Active Substance: NIRAPARIB
     Indication: OVARIAN CANCER
     Dosage: 100 MG
     Dates: start: 20190226

REACTIONS (9)
  - Onychoclasis [Unknown]
  - Dehydration [Unknown]
  - Rosacea [Unknown]
  - Alopecia [Unknown]
  - Somnolence [Unknown]
  - Adverse drug reaction [Unknown]
  - Loss of consciousness [Unknown]
  - Thyroid mass [Unknown]
  - Product dose omission in error [Unknown]
